FAERS Safety Report 18781057 (Version 1)
Quarter: 2021Q1

REPORT INFORMATION
  Report Type: Spontaneous
  Country: US (occurrence: US)
  Receive Date: 20210124
  Receipt Date: 20210124
  Transmission Date: 20210419
  Serious: Yes (Life-Threatening, Hospitalization)
  Sender: FDA-Public Use
  Company Number: None

PATIENT
  Age: 63 Year
  Sex: Male
  Weight: 72.12 kg

DRUGS (2)
  1. NOVOLOG [Suspect]
     Active Substance: INSULIN ASPART
     Indication: DIABETES MELLITUS
     Route: 058
     Dates: start: 20121026
  2. INSULIN (INSULIN, GLARGINE, HUMAN 300 UNIT/ML INJ, SOLOSTAR, 3ML) [Suspect]
     Active Substance: INSULIN GLARGINE
     Indication: DIABETES MELLITUS
     Route: 058
     Dates: start: 20090616

REACTIONS (2)
  - Intentional dose omission [None]
  - Diabetic ketoacidosis [None]

NARRATIVE: CASE EVENT DATE: 20200715
